FAERS Safety Report 9119372 (Version 1)
Quarter: 2013Q1

REPORT INFORMATION
  Report Type: Spontaneous
  Country: US (occurrence: US)
  Receive Date: 20130207
  Receipt Date: 20130207
  Transmission Date: 20140127
  Serious: No
  Sender: FDA-Public Use
  Company Number: US-PFIZER INC-2013051818

PATIENT
  Sex: Female

DRUGS (2)
  1. LYRICA [Suspect]
     Indication: FIBROMYALGIA
     Dosage: 150 MG, 1X/DAY
     Route: 048
     Dates: start: 2012
  2. LYRICA [Suspect]
     Dosage: 150 MG, ALTERNATE DAY
     Route: 048
     Dates: start: 201301, end: 20130203

REACTIONS (5)
  - Asthenia [Unknown]
  - Fatigue [Unknown]
  - Tremor [Unknown]
  - Nausea [Unknown]
  - Inappropriate schedule of drug administration [Unknown]
